APPROVED DRUG PRODUCT: NEOMYCIN AND POLYMYXIN B SULFATES AND DEXAMETHASONE
Active Ingredient: DEXAMETHASONE; NEOMYCIN SULFATE; POLYMYXIN B SULFATE
Strength: 0.1%;EQ 3.5MG BASE/GM;10,000 UNITS/GM
Dosage Form/Route: OINTMENT;OPHTHALMIC
Application: A062938 | Product #001 | TE Code: AT
Applicant: PADAGIS US LLC
Approved: Jul 31, 1989 | RLD: No | RS: No | Type: RX